FAERS Safety Report 15124824 (Version 1)
Quarter: 2018Q3

REPORT INFORMATION
  Report Type: Spontaneous
  Country: US (occurrence: US)
  Receive Date: 20180613
  Receipt Date: 20180613
  Transmission Date: 20181010
  Serious: No
  Sender: FDA-Public Use
  Company Number: None

PATIENT
  Age: 15 Year
  Sex: Male

DRUGS (20)
  1. LORAZEPAM. [Concomitant]
     Active Substance: LORAZEPAM
  2. OPSUMIT [Suspect]
     Active Substance: MACITENTAN
     Indication: PULMONARY ARTERIAL HYPERTENSION
     Route: 048
     Dates: start: 201512, end: 201806
  3. ADCIRCA [Concomitant]
     Active Substance: TADALAFIL
  4. CLONIDINE. [Concomitant]
     Active Substance: CLONIDINE
  5. COMPAZINE [Concomitant]
     Active Substance: PROCHLORPERAZINE MALEATE
  6. INULIN [Concomitant]
     Active Substance: INULIN
  7. MELATONIN [Concomitant]
     Active Substance: MELATONIN
  8. EMLA [Concomitant]
     Active Substance: LIDOCAINE\PRILOCAINE
  9. LASIX [Concomitant]
     Active Substance: FUROSEMIDE
  10. ROXANOL [Concomitant]
     Active Substance: MORPHINE SULFATE
  11. GUAIFENESIN. [Concomitant]
     Active Substance: GUAIFENESIN
  12. FISH OIL [Concomitant]
     Active Substance: FISH OIL
  13. SPIRONOLACTONE. [Concomitant]
     Active Substance: SPIRONOLACTONE
  14. ASPIRIN. [Concomitant]
     Active Substance: ASPIRIN
  15. TYLENOL [Concomitant]
     Active Substance: ACETAMINOPHEN
  16. ORENITRAM [Concomitant]
     Active Substance: TREPROSTINIL
  17. RANITIDINE. [Concomitant]
     Active Substance: RANITIDINE
  18. MEDICAL MARIJUANA [Concomitant]
     Active Substance: CANNABIS SATIVA SUBSP. INDICA TOP
  19. SENNA [Concomitant]
     Active Substance: SENNA LEAF\SENNOSIDES\SENNOSIDES A AND B
  20. OXYCODONE [Concomitant]
     Active Substance: OXYCODONE

REACTIONS (2)
  - Dyspnoea [None]
  - Peripheral swelling [None]

NARRATIVE: CASE EVENT DATE: 20180529
